APPROVED DRUG PRODUCT: CALOMIST
Active Ingredient: CYANOCOBALAMIN
Strength: 25MCG/SPRAY
Dosage Form/Route: SPRAY, METERED;NASAL
Application: N022102 | Product #001
Applicant: PH HEALTH LTD
Approved: Jul 27, 2007 | RLD: No | RS: No | Type: DISCN